FAERS Safety Report 4576877-6 (Version None)
Quarter: 2005Q1

REPORT INFORMATION
  Report Type: 
  Country: None (occurrence: None)
  Receive Date: 20050210
  Receipt Date: 20050131
  Transmission Date: 20050727
  Serious: Yes (Other)
  Sender: FDA-Public Use
  Company Number: HQWYE029402FEB05

PATIENT
  Sex: Female

DRUGS (2)
  1. ENBREL [Suspect]
     Indication: RHEUMATOID ARTHRITIS
     Dosage: UNKNOWN
     Dates: start: 19990507, end: 20040101
  2. ENBREL [Suspect]
     Dosage: UNKNOWN

REACTIONS (2)
  - ARTHRITIS [None]
  - INFECTION IN AN IMMUNOCOMPROMISED HOST [None]
